FAERS Safety Report 10345108 (Version 3)
Quarter: 2014Q4

REPORT INFORMATION
  Report Type: Spontaneous
  Country: US (occurrence: US)
  Receive Date: 20140728
  Receipt Date: 20141205
  Transmission Date: 20150528
  Serious: Yes (Hospitalization)
  Sender: FDA-Public Use
  Company Number: US-BAYER-2014-107043

PATIENT
  Age: 21 Year
  Sex: Female
  Weight: 72.56 kg

DRUGS (4)
  1. MIRENA [Suspect]
     Active Substance: LEVONORGESTREL
     Indication: CONTRACEPTION
     Dosage: 20 MCG/24HR, CONT
     Route: 015
     Dates: start: 20100219, end: 20120717
  2. FLAGYL [Concomitant]
     Active Substance: METRONIDAZOLE\METRONIDAZOLE HYDROCHLORIDE
  3. MONISTAT [Concomitant]
     Active Substance: MICONAZOLE NITRATE
  4. METRONIDAZOLE. [Concomitant]
     Active Substance: METRONIDAZOLE

REACTIONS (11)
  - Complication of device removal [None]
  - Device difficult to use [None]
  - Medical device pain [None]
  - Procedural pain [None]
  - Dyspareunia [None]
  - Device breakage [None]
  - Injury [None]
  - Post procedural discomfort [None]
  - Embedded device [None]
  - Fear [Not Recovered/Not Resolved]
  - Abdominal pain lower [None]

NARRATIVE: CASE EVENT DATE: 2012
